FAERS Safety Report 9387090 (Version 3)
Quarter: 2013Q4

REPORT INFORMATION
  Report Type: Spontaneous
  Country: GB (occurrence: None)
  Receive Date: 20130702
  Receipt Date: 20131029
  Transmission Date: 20140711
  Serious: Yes (Hospitalization, Disabling)
  Sender: FDA-Public Use
  Company Number: AUR-APL-2013-05369

PATIENT
  Age: 25 Year
  Sex: Female

DRUGS (8)
  1. QUETIAPINE [Suspect]
     Indication: PSYCHOTIC DISORDER
     Route: 048
     Dates: start: 20130208, end: 2013
  2. CLARITHROMYCIN (CLARITHROMYCIN) [Concomitant]
  3. CODEINE PHOSPHATE (CODEINE PHOSPHATE) [Concomitant]
  4. CYCLIZINE HYDROCHLORIDE (CYCLIZINE HYDROCHLORIDE) [Concomitant]
  5. MEBEVERINE (MEBEVERINE) [Concomitant]
  6. MIRTAZAPINE (MIRTAZAPINE) [Concomitant]
  7. PROCYCLIDINE (PROCYCLIDINE) [Concomitant]
  8. TRIMETHOPRIM (TRIMETHOPRIM) [Concomitant]

REACTIONS (2)
  - Myositis [None]
  - Rhabdomyolysis [None]
